FAERS Safety Report 4735818-9 (Version None)
Quarter: 2005Q3

REPORT INFORMATION
  Report Type: 
  Country: None (occurrence: None)
  Receive Date: 20050805
  Receipt Date: 20050726
  Transmission Date: 20060218
  Serious: Yes (Other)
  Sender: FDA-Public Use
  Company Number: 2005AP04091

PATIENT
  Age: 80 Year
  Sex: Male

DRUGS (2)
  1. CASODEX [Suspect]
     Indication: PROSTATE CANCER
     Route: 048
     Dates: start: 20050201
  2. FAMOTIDINE [Suspect]
     Route: 048
     Dates: start: 20050101, end: 20050101

REACTIONS (1)
  - BRADYCARDIA [None]
